FAERS Safety Report 7450832-0 (Version None)
Quarter: 2011Q2

REPORT INFORMATION
  Report Type: 
  Country: None (occurrence: None)
  Receive Date: 20110422
  Receipt Date: 20110411
  Transmission Date: 20111010
  Serious: Yes (Other)
  Sender: FDA-Public Use
  Company Number: 2011SP016873

PATIENT
  Age: 60 Year
  Sex: Male

DRUGS (2)
  1. PEG-INTRON [Suspect]
     Indication: HEPATITIS C
     Dosage: 100 MCG; QW, SC
     Route: 058
     Dates: start: 20100101, end: 20110101
  2. REBETOL [Suspect]
     Indication: HEPATITIS C
     Dosage: 600 MG QD, PO
     Route: 048
     Dates: start: 20100101, end: 20110101

REACTIONS (2)
  - LUNG NEOPLASM MALIGNANT [None]
  - TUBULOINTERSTITIAL NEPHRITIS [None]
